FAERS Safety Report 7074810-9 (Version None)
Quarter: 2010Q4

REPORT INFORMATION
  Report Type: 
  Country: None (occurrence: None)
  Receive Date: 20101029
  Receipt Date: 20101015
  Transmission Date: 20110411
  Serious: Yes (Hospitalization, Other)
  Sender: FDA-Public Use
  Company Number: GB-GENENTECH-295707

PATIENT
  Sex: Female
  Weight: 110 kg

DRUGS (6)
  1. XOLAIR [Suspect]
  2. RISEDRONATE SODIUM [Concomitant]
  3. FRUSEMIDE [Concomitant]
  4. OMEPRAZOLE [Concomitant]
  5. PHYLLOCONTIN [Concomitant]
  6. METFORMIN [Concomitant]

REACTIONS (12)
  - ANAPHYLACTOID REACTION [None]
  - ASTHMA [None]
  - BRONCHOSPASM [None]
  - COUGH [None]
  - DIZZINESS [None]
  - DYSPNOEA [None]
  - FEELING HOT [None]
  - HYPERHIDROSIS [None]
  - HYPERTENSION [None]
  - HYPOTENSION [None]
  - SNEEZING [None]
  - WHEEZING [None]
